FAERS Safety Report 8180382-8 (Version None)
Quarter: 2012Q1

REPORT INFORMATION
  Report Type: 
  Country: None (occurrence: None)
  Receive Date: 20120302
  Receipt Date: 20120217
  Transmission Date: 20120608
  Serious: Yes (Hospitalization)
  Sender: FDA-Public Use
  Company Number: NZ-MYLANLABS-2012S1004014

PATIENT
  Age: 45 Year
  Sex: Female

DRUGS (3)
  1. TRIMETHOPRIM [Concomitant]
     Indication: INFECTION
     Route: 065
  2. CLOZAPINE [Suspect]
     Indication: SCHIZOPHRENIA
     Dosage: 700 MG/DAY
     Route: 065
  3. VALPROIC ACID [Concomitant]
     Route: 065

REACTIONS (3)
  - DIZZINESS [None]
  - TOXICITY TO VARIOUS AGENTS [None]
  - GAIT DISTURBANCE [None]
